FAERS Safety Report 5977910-7 (Version None)
Quarter: 2008Q4

REPORT INFORMATION
  Report Type: 
  Country: None (occurrence: None)
  Receive Date: 20081203
  Receipt Date: 20081126
  Transmission Date: 20090506
  Serious: Yes (Other)
  Sender: FDA-Public Use
  Company Number: JP-B.I. PHARMACEUTICALS,INC./RIDGEFIELD-2008-BP-16441NB

PATIENT
  Age: 32 Year
  Sex: Male
  Weight: 57 kg

DRUGS (9)
  1. MICARDIS [Suspect]
     Indication: HYPERTENSION
     Dosage: 80MG
     Route: 048
     Dates: start: 20070608
  2. PROGRAF [Suspect]
     Indication: LUPUS NEPHRITIS
     Dosage: 2MG
     Route: 048
     Dates: start: 20070531
  3. PREDNISOLONE [Suspect]
     Indication: LUPUS NEPHRITIS
     Dosage: 25MG
     Route: 048
     Dates: start: 20070531
  4. ZANTAC [Concomitant]
     Dosage: 300MG
     Route: 048
  5. ALFAROL [Concomitant]
     Dosage: .5MCG
     Route: 048
  6. MEVALOTIN [Concomitant]
     Dosage: 10MG
     Route: 048
     Dates: start: 20070829
  7. BONALON [Concomitant]
     Route: 048
  8. CYANOCOBALAMIN [Concomitant]
     Dosage: 1500MCG
     Route: 048
     Dates: start: 20070616, end: 20080116
  9. WARFARIN SODIUM [Concomitant]
     Dosage: 2MG
     Route: 048

REACTIONS (5)
  - BLOOD CREATININE INCREASED [None]
  - HERPES ZOSTER [None]
  - ORAL CANDIDIASIS [None]
  - UPPER RESPIRATORY TRACT INFLAMMATION [None]
  - WHITE BLOOD CELL COUNT INCREASED [None]
